FAERS Safety Report 4851169-6 (Version None)
Quarter: 2005Q4

REPORT INFORMATION
  Report Type: 
  Country: None (occurrence: None)
  Receive Date: 20051208
  Receipt Date: 20051121
  Transmission Date: 20060501
  Serious: Yes (Hospitalization)
  Sender: FDA-Public Use
  Company Number: 8013432

PATIENT
  Age: 14 Year
  Sex: Male

DRUGS (3)
  1. METADATE CD [Suspect]
     Indication: ATTENTION DEFICIT/HYPERACTIVITY DISORDER
     Dosage: 20 MG/D PO
     Route: 048
     Dates: start: 20051108
  2. ADDERALL 10 [Concomitant]
  3. MULTI-VITAMIN [Concomitant]

REACTIONS (4)
  - HYPERHIDROSIS [None]
  - MITRAL VALVE PROLAPSE [None]
  - PALLOR [None]
  - SOMNOLENCE [None]
